FAERS Safety Report 10855968 (Version 1)
Quarter: 2015Q1

REPORT INFORMATION
  Report Type: Spontaneous
  Country: US (occurrence: None)
  Receive Date: 20150218
  Receipt Date: 20150218
  Transmission Date: 20150721
  Serious: Yes (Disabling)
  Sender: FDA-Public Use
  Company Number: None

PATIENT
  Age: 50 Year
  Sex: Male
  Weight: 83.01 kg

DRUGS (21)
  1. DULERS [Concomitant]
  2. GABAPENTIN. [Concomitant]
     Active Substance: GABAPENTIN
  3. ADDERALL [Concomitant]
     Active Substance: AMPHETAMINE ASPARTATE\AMPHETAMINE SULFATE\DEXTROAMPHETAMINE SACCHARATE\DEXTROAMPHETAMINE SULFATE
  4. AMITZIA [Concomitant]
  5. OPANA ER [Suspect]
     Active Substance: OXYMORPHONE HYDROCHLORIDE
     Indication: PAIN
     Route: 048
     Dates: start: 20100831, end: 20150101
  6. CELEBREX [Concomitant]
     Active Substance: CELECOXIB
  7. PROLIS [Concomitant]
  8. VITAMIN D [Concomitant]
     Active Substance: CHOLECALCIFEROL
  9. PREVACID [Concomitant]
     Active Substance: LANSOPRAZOLE
  10. METHOTREXATE [Concomitant]
     Active Substance: METHOTREXATE
  11. ANDROGEL [Concomitant]
     Active Substance: TESTOSTERONE
  12. PREDNISONE. [Concomitant]
     Active Substance: PREDNISONE
  13. CIMZIA [Concomitant]
     Active Substance: CERTOLIZUMAB PEGOL
  14. ZOCOR [Concomitant]
     Active Substance: SIMVASTATIN
  15. CALCIUM CITRATE [Concomitant]
     Active Substance: CALCIUM CITRATE
  16. OPANA IR [Concomitant]
  17. FOLIC ACID. [Concomitant]
     Active Substance: FOLIC ACID
  18. RISPERDAL [Concomitant]
     Active Substance: RISPERIDONE
  19. AMBIEN CR [Concomitant]
     Active Substance: ZOLPIDEM TARTRATE
  20. ZOLOFT DEVICES [Concomitant]
  21. MEDTRONIC NEUROMODULATOR [Concomitant]

REACTIONS (9)
  - Foot fracture [None]
  - Reaction to drug excipients [None]
  - Dyspnoea [None]
  - Thoracic vertebral fracture [None]
  - Lumbar vertebral fracture [None]
  - Diastasis recti abdominis [None]
  - Pain [None]
  - Constipation [None]
  - Disease recurrence [None]

NARRATIVE: CASE EVENT DATE: 20150130
